FAERS Safety Report 5789630-2 (Version None)
Quarter: 2008Q2

REPORT INFORMATION
  Report Type: 
  Country: None (occurrence: None)
  Receive Date: 20080626
  Receipt Date: 20080530
  Transmission Date: 20081010
  Serious: No
  Sender: FDA-Public Use
  Company Number: US-BAYER-200824581NA

PATIENT
  Age: 65 Year
  Sex: Female

DRUGS (2)
  1. ULTRAVIST 370 [Suspect]
     Indication: ANGIOGRAM
     Dosage: TOTAL DAILY DOSE: 180 ML  UNIT DOSE: 100 ML
     Route: 042
     Dates: start: 20080520, end: 20080520
  2. SOLU-MEDROL [Concomitant]
     Indication: PREMEDICATION
     Dosage: AS USED: 32 MG
     Dates: start: 20080501, end: 20080520

REACTIONS (3)
  - HYPOAESTHESIA ORAL [None]
  - SENSATION OF FOREIGN BODY [None]
  - URTICARIA [None]
